FAERS Safety Report 18462510 (Version 1)
Quarter: 2020Q4

REPORT INFORMATION
  Report Type: Spontaneous
  Country: GU (occurrence: GU)
  Receive Date: 20201104
  Receipt Date: 20201104
  Transmission Date: 20210114
  Serious: No
  Sender: FDA-Public Use
  Company Number: None

PATIENT
  Age: 63 Year
  Sex: Male
  Weight: 68 kg

DRUGS (20)
  1. ENOXAPARIN INJ [Concomitant]
     Active Substance: ENOXAPARIN SODIUM
     Dates: start: 20201026
  2. TRAMADOL. [Concomitant]
     Active Substance: TRAMADOL
     Dates: start: 20201028, end: 20201030
  3. REMDESIVIR. [Suspect]
     Active Substance: REMDESIVIR
     Indication: COVID-19
     Route: 042
     Dates: start: 20201026, end: 20201030
  4. THIAMINE. [Concomitant]
     Active Substance: THIAMINE
     Dates: start: 20201026
  5. CLONAZEPAM. [Concomitant]
     Active Substance: CLONAZEPAM
     Dates: start: 20201029, end: 20201031
  6. PANTOPRAZOLE [Concomitant]
     Active Substance: PANTOPRAZOLE
     Dates: start: 20201027
  7. ACETAMINOPHEN TABLET [Concomitant]
     Active Substance: ACETAMINOPHEN
     Dates: start: 20201026
  8. ALPRAZOLAM. [Concomitant]
     Active Substance: ALPRAZOLAM
     Dates: start: 20201029, end: 20201030
  9. CEFTRIAXONE INJECTABLE [Concomitant]
     Dates: start: 20201026, end: 20201101
  10. ALBUTEROL MDI [Concomitant]
     Active Substance: ALBUTEROL
     Dates: start: 20201026
  11. ASCORBIC ACID. [Concomitant]
     Active Substance: ASCORBIC ACID
     Dates: start: 20201026
  12. AZITHROMYCIN TABLET [Concomitant]
     Active Substance: AZITHROMYCIN
     Dates: start: 20201026, end: 20201101
  13. DEXAMETHASONE INJECTABLE [Concomitant]
     Dates: start: 20201026
  14. HYDRALAZINE INJ [Concomitant]
     Dates: start: 20201026
  15. MELATONIN [Concomitant]
     Active Substance: MELATONIN
     Dates: start: 20201026, end: 20201104
  16. DOCUSATE SODIUM. [Concomitant]
     Active Substance: DOCUSATE SODIUM
     Dates: start: 20201027
  17. ZINC GLUCONATE [Concomitant]
     Active Substance: ZINC GLUCONATE
     Dates: start: 20201026
  18. ATORVASTATIN TABLET [Concomitant]
     Active Substance: ATORVASTATIN
     Dates: start: 20201027, end: 20201030
  19. IPRATROPIUM MDI [Concomitant]
     Dates: start: 20201026
  20. GUAIFENESIN. [Concomitant]
     Active Substance: GUAIFENESIN
     Dates: start: 20201028

REACTIONS (1)
  - Alanine aminotransferase increased [None]

NARRATIVE: CASE EVENT DATE: 20201030
